FAERS Safety Report 21359353 (Version 7)
Quarter: 2024Q1

REPORT INFORMATION
  Report Type: Report from Study
  Country: US (occurrence: US)
  Receive Date: 20220921
  Receipt Date: 20240129
  Transmission Date: 20240409
  Serious: No
  Sender: FDA-Public Use
  Company Number: US-NOVARTISTESTPH-NVSC2022US211017

PATIENT
  Age: 31 Year
  Sex: Female

DRUGS (2)
  1. KESIMPTA [Suspect]
     Active Substance: OFATUMUMAB
     Indication: Multiple sclerosis
     Dosage: 20 MG, QW
     Route: 058
     Dates: start: 20220903
  2. KESIMPTA [Suspect]
     Active Substance: OFATUMUMAB
     Dosage: UNK, (SECOND INJECTION)
     Route: 065
     Dates: start: 20220911

REACTIONS (20)
  - Cold sweat [Recovered/Resolved]
  - Cold sweat [Unknown]
  - Joint instability [Unknown]
  - Pain [Recovered/Resolved]
  - Pain [Unknown]
  - Glossodynia [Unknown]
  - Mouth ulceration [Unknown]
  - Tongue ulceration [Unknown]
  - Stomatitis [Unknown]
  - Asthenia [Recovered/Resolved]
  - Asthenia [Unknown]
  - Dyspnoea [Recovered/Resolved]
  - Dyspnoea [Unknown]
  - Dizziness [Recovered/Resolved]
  - Dizziness [Unknown]
  - Nasopharyngitis [Not Recovered/Not Resolved]
  - Facial pain [Unknown]
  - Rhinorrhoea [Unknown]
  - Rhinalgia [Unknown]
  - Inappropriate schedule of product administration [Unknown]

NARRATIVE: CASE EVENT DATE: 20220906
